FAERS Safety Report 14124110 (Version 1)
Quarter: 2017Q4

REPORT INFORMATION
  Report Type: Report from Study
  Country: DE (occurrence: DE)
  Receive Date: 20171025
  Receipt Date: 20171025
  Transmission Date: 20180321
  Serious: Yes (Death)
  Sender: FDA-Public Use
  Company Number: DE-ROCHE-1354917

PATIENT
  Age: 68 Year
  Sex: Female

DRUGS (4)
  1. BEVACIZUMAB. [Suspect]
     Active Substance: BEVACIZUMAB
     Indication: BREAST CANCER
     Route: 065
     Dates: start: 20120927, end: 20130626
  2. XELODA [Suspect]
     Active Substance: CAPECITABINE
     Indication: BREAST CANCER
     Dosage: 1000 MG
     Route: 065
     Dates: start: 20120927
  3. XELODA [Suspect]
     Active Substance: CAPECITABINE
     Dosage: SHE WAS DISPENSED CAPECITABINE ON 18/OCT/2012, 08/NOV/2012, 29/NOV/2012, 20/DEC/2012, 10/JAN/2013, 3
     Route: 065
  4. XELODA [Suspect]
     Active Substance: CAPECITABINE
     Dosage: 1000 MG
     Route: 065
     Dates: end: 20130626

REACTIONS (1)
  - General physical health deterioration [Fatal]

NARRATIVE: CASE EVENT DATE: 20131217
